FAERS Safety Report 9998098 (Version 1)
Quarter: 2014Q1

REPORT INFORMATION
  Report Type: Spontaneous
  Country: US (occurrence: None)
  Receive Date: 20140218
  Receipt Date: 20140218
  Transmission Date: 20141002
  Serious: Yes (Other)
  Sender: FDA-Public Use
  Company Number: 1000052124

PATIENT
  Sex: Male

DRUGS (8)
  1. VIIBRYD [Suspect]
     Indication: DEPRESSION
     Dosage: 20 MG (20 MG, 1 IN 1 D), ORAL
     Route: 048
     Dates: start: 2013
  2. VIIBRYD [Suspect]
     Indication: BIPOLAR DISORDER
     Dosage: 20 MG (20 MG, 1 IN 1 D), ORAL
     Route: 048
     Dates: start: 2013
  3. LAMICTAL (LAMOTRIGINE) (LAMOTRIGINE) [Concomitant]
  4. VIMPAT (LACOSAMIDE) (LACOSAMIDE) [Concomitant]
  5. DIOVAN (VALSARTAN) (VALSARTAN) [Concomitant]
  6. AMLODIPINE (AMLODIPINE) (AMLODIPINE) [Concomitant]
  7. LEVOTHYROXINE (LEVOTHYROXINE SODIUM) (LEVOTHYROXINE SODIUM) [Concomitant]
  8. LORAZEPAM (LORAZEPAM) (LORAZEPAM) [Concomitant]

REACTIONS (2)
  - Abnormal behaviour [None]
  - Off label use [None]
